FAERS Safety Report 9275093 (Version 2)
Quarter: 2013Q2

REPORT INFORMATION
  Report Type: Spontaneous
  Country: US (occurrence: US)
  Receive Date: 20130507
  Receipt Date: 20130527
  Transmission Date: 20140414
  Serious: Yes (Other)
  Sender: FDA-Public Use
  Company Number: US-PFIZER INC-2013141093

PATIENT
  Age: 63 Year
  Sex: Male

DRUGS (9)
  1. LYRICA [Suspect]
     Indication: DIABETIC NEPHROPATHY
     Dosage: 50 MG, 1X/DAY
  2. LYRICA [Suspect]
     Dosage: 75 MG, QHSX7D
     Route: 048
     Dates: start: 2013, end: 2013
  3. LYRICA [Suspect]
     Dosage: 75 MG, 2X/DAY 2D
     Route: 048
     Dates: start: 2013, end: 2013
  4. LISINOPRIL [Concomitant]
     Indication: HYPERTENSION
     Dosage: 10 MG, QHS
  5. METFORMIN [Concomitant]
     Dosage: 500 MG, 2 ORAL QHS
     Route: 048
  6. ALLOPURINOL [Concomitant]
     Dosage: 300 MG, 1X/DAY
  7. GLIPIZIDE [Concomitant]
     Indication: TYPE 2 DIABETES MELLITUS
     Dosage: 5 MG, 1X/DAY
     Route: 048
  8. CELEXA [Concomitant]
     Dosage: 40 MG, 1X/DAY
     Route: 048
  9. VITAMIN D3 [Concomitant]
     Dosage: 2000 IU, 1X/DAY
     Route: 048

REACTIONS (4)
  - Rash [Unknown]
  - Urticaria [Unknown]
  - Face oedema [Unknown]
  - Eye swelling [Unknown]
